FAERS Safety Report 5769397-4 (Version None)
Quarter: 2008Q2

REPORT INFORMATION
  Report Type: 
  Country: None (occurrence: None)
  Receive Date: 20080612
  Receipt Date: 20080331
  Transmission Date: 20081010
  Serious: No
  Sender: FDA-Public Use
  Company Number: US-ABBOTT-08P-163-0444705-00

PATIENT
  Sex: Male
  Weight: 86.26 kg

DRUGS (4)
  1. HUMIRA [Suspect]
     Indication: PSORIATIC ARTHROPATHY
     Route: 058
     Dates: start: 20080317, end: 20080317
  2. HUMIRA [Suspect]
     Route: 058
     Dates: start: 20080324, end: 20080324
  3. HUMIRA [Suspect]
     Route: 058
     Dates: start: 20080407
  4. KETOPROFEN [Concomitant]
     Indication: PSORIATIC ARTHROPATHY
     Route: 048

REACTIONS (3)
  - DIARRHOEA [None]
  - MALAISE [None]
  - VOMITING [None]
